FAERS Safety Report 7365039-5 (Version None)
Quarter: 2011Q1

REPORT INFORMATION
  Report Type: 
  Country: None (occurrence: None)
  Receive Date: 20110321
  Receipt Date: 20110308
  Transmission Date: 20110831
  Serious: Yes (Hospitalization)
  Sender: FDA-Public Use
  Company Number: ES-TEVA-271912ISR

PATIENT
  Sex: Female

DRUGS (15)
  1. PANTOPRAZOLE SODIUM [Concomitant]
     Indication: PRODUCT USED FOR UNKNOWN INDICATION
  2. AMOXICILLIN [Concomitant]
     Indication: RESPIRATORY TRACT INFECTION
  3. DEXAMETHASONE [Suspect]
     Indication: MULTIPLE MYELOMA
     Dates: start: 20101109, end: 20101207
  4. BROMAZEPAM [Concomitant]
     Indication: CARDIAC FAILURE
  5. ACENOCOUMAROL [Concomitant]
     Indication: ARRHYTHMIA
     Route: 048
  6. DIGOXIN [Concomitant]
     Indication: ARRHYTHMIA
     Route: 048
  7. GABAPENTIN [Concomitant]
     Indication: CARDIAC FAILURE
  8. AZITHROMYCIN [Concomitant]
     Indication: RESPIRATORY TRACT INFECTION
  9. LENALIDOMIDE (CC-5013) [Suspect]
     Indication: MULTIPLE MYELOMA
     Route: 048
     Dates: start: 20101109
  10. FUROSEMIDE [Concomitant]
     Indication: ARRHYTHMIA
     Route: 048
  11. DIOSMIN [Concomitant]
     Indication: CARDIAC FAILURE
  12. LENALIDOMIDE (CC-5013) [Suspect]
     Route: 048
     Dates: end: 20101130
  13. RHODOGIL [Concomitant]
     Indication: ARRHYTHMIA
     Route: 048
  14. LETROZOLE [Concomitant]
     Indication: CARDIAC FAILURE
  15. TELMISARTAN [Concomitant]
     Indication: CARDIAC FAILURE

REACTIONS (1)
  - CARDIAC FAILURE [None]
